FAERS Safety Report 21936832 (Version 3)
Quarter: 2023Q2

REPORT INFORMATION
  Report Type: Spontaneous
  Country: US (occurrence: US)
  Receive Date: 20230201
  Receipt Date: 20230411
  Transmission Date: 20230722
  Serious: Yes (Hospitalization)
  Sender: FDA-Public Use
  Company Number: US-BIOVITRUM-2023US01215

PATIENT
  Age: 1 Year
  Sex: Female

DRUGS (3)
  1. KINERET [Suspect]
     Active Substance: ANAKINRA
     Indication: Still^s disease
     Dosage: DAILY
     Route: 058
     Dates: start: 20230126
  2. KINERET [Suspect]
     Active Substance: ANAKINRA
     Dosage: DAILY
     Route: 058
     Dates: start: 202301
  3. ILARIS [Suspect]
     Active Substance: CANAKINUMAB
     Indication: Product used for unknown indication

REACTIONS (9)
  - Intentional product misuse [Unknown]
  - Pyrexia [Unknown]
  - Pain [Unknown]
  - Product dose omission issue [Unknown]
  - Insurance issue [Unknown]
  - Rash [Unknown]
  - Petechiae [Unknown]
  - Gastrointestinal infection [Unknown]
  - Dehydration [Unknown]

NARRATIVE: CASE EVENT DATE: 20230126
